FAERS Safety Report 10094889 (Version 1)
Quarter: 2014Q2

REPORT INFORMATION
  Report Type: Spontaneous
  Country: GB (occurrence: None)
  Receive Date: 20140418
  Receipt Date: 20140418
  Transmission Date: 20141212
  Serious: Yes (Hospitalization, Disabling)
  Sender: FDA-Public Use
  Company Number: FK201401282

PATIENT
  Age: 18 Year
  Sex: Female

DRUGS (2)
  1. METHYLPREDNISOLONE [Suspect]
     Indication: OPTIC NEURITIS
     Route: 042
  2. PREDNISOLONE [Suspect]
     Indication: OPTIC NEURITIS
     Route: 048

REACTIONS (4)
  - Necrotising herpetic retinopathy [None]
  - Retinal detachment [None]
  - Disease recurrence [None]
  - Blindness [None]
